FAERS Safety Report 19653500 (Version 7)
Quarter: 2024Q3

REPORT INFORMATION
  Report Type: Report from Study
  Country: CO (occurrence: CO)
  Receive Date: 20210803
  Receipt Date: 20240802
  Transmission Date: 20241016
  Serious: No
  Sender: NOVARTIS
  Company Number: NVSC2021CO169125

PATIENT
  Sex: Female

DRUGS (3)
  1. ELTROMBOPAG OLAMINE [Suspect]
     Active Substance: ELTROMBOPAG OLAMINE
     Indication: Aplastic anaemia
     Dosage: 25 MG, QD
     Route: 048
     Dates: start: 20210401
  2. ELTROMBOPAG OLAMINE [Suspect]
     Active Substance: ELTROMBOPAG OLAMINE
     Indication: Immune thrombocytopenia
     Dosage: 50 MG, QD
     Route: 048
  3. ELTROMBOPAG OLAMINE [Suspect]
     Active Substance: ELTROMBOPAG OLAMINE
     Dosage: UNK, QD
     Route: 048

REACTIONS (5)
  - Haemorrhage [Unknown]
  - Gingival bleeding [Unknown]
  - Platelet count decreased [Unknown]
  - Product dose omission issue [Unknown]
  - Product supply issue [Unknown]
